FAERS Safety Report 4630452-3 (Version None)
Quarter: 2005Q2

REPORT INFORMATION
  Report Type: 
  Country: None (occurrence: None)
  Receive Date: 20050406
  Receipt Date: 20050328
  Transmission Date: 20051028
  Serious: No
  Sender: FDA-Public Use
  Company Number: USA050392704

PATIENT
  Age: 74 Year
  Sex: Female

DRUGS (8)
  1. FORTEO [Suspect]
     Indication: OSTEOPOROSIS
     Dates: start: 20030201, end: 20050222
  2. TEVETEN [Concomitant]
  3. VERELAN (VEREPAMIL HYDROCHLORIDE) [Concomitant]
  4. CALCIUM GLUCONATE [Concomitant]
  5. VITAMIN C [Concomitant]
  6. VITAMIN B-12 [Concomitant]
  7. FISH OIL [Concomitant]
  8. GLUCOSAMINE CHONDROITIN [Concomitant]

REACTIONS (5)
  - BLOOD CALCIUM INCREASED [None]
  - CONSTIPATION [None]
  - DIFFICULTY IN WALKING [None]
  - MUSCLE SPASMS [None]
  - PHARMACEUTICAL PRODUCT COMPLAINT [None]
